FAERS Safety Report 23061298 (Version 3)
Quarter: 2023Q4

REPORT INFORMATION
  Report Type: Report from Study
  Country: GB (occurrence: GB)
  Receive Date: 20231013
  Receipt Date: 20231106
  Transmission Date: 20240110
  Serious: Yes (Death, Hospitalization, Disabling)
  Sender: FDA-Public Use
  Company Number: GB-BoehringerIngelheim-2019-BI-026578

PATIENT
  Age: 67 Year
  Sex: Male
  Weight: 79 kg

DRUGS (1)
  1. ALTEPLASE [Suspect]
     Active Substance: ALTEPLASE
     Indication: Ischaemic stroke
     Route: 042
     Dates: start: 20190611

REACTIONS (2)
  - Neoplasm malignant [Fatal]
  - Cerebral haemorrhage [Recovered/Resolved with Sequelae]

NARRATIVE: CASE EVENT DATE: 20190611
